FAERS Safety Report 7465254-6 (Version None)
Quarter: 2011Q2

REPORT INFORMATION
  Report Type: 
  Country: None (occurrence: None)
  Receive Date: 20110509
  Receipt Date: 20110426
  Transmission Date: 20111010
  Serious: Yes (Hospitalization)
  Sender: FDA-Public Use
  Company Number: PHHY2011US03960

PATIENT
  Sex: Male
  Weight: 147.85 kg

DRUGS (14)
  1. FLUTICASONE PROPIONATE [Concomitant]
     Dosage: UNK UKN, UNK
     Dates: start: 20101027
  2. ALEVE [Concomitant]
     Dosage: 2 DF, BID
     Route: 048
     Dates: start: 20100225, end: 20110222
  3. CETIRIZINE HCL [Concomitant]
     Dosage: 1 DF, QD
     Route: 048
     Dates: start: 20101027
  4. CARBAMAZEPINE [Suspect]
     Indication: CONVULSION
     Dosage: 400 MG, BID
     Route: 048
     Dates: start: 20101111
  5. MULTI-VITAMINS [Concomitant]
     Route: 048
  6. TEGRETOL-XR [Suspect]
     Indication: CONVULSION
     Dosage: 400 MG, BID
     Dates: start: 20100803, end: 20101111
  7. VITAMIN D [Concomitant]
     Dosage: 1 DF, QD
  8. CYANOCOBALAMIN [Concomitant]
  9. INDERAL LA [Concomitant]
     Dosage: 1 DF, UNK
     Route: 048
     Dates: start: 20100520, end: 20101116
  10. RIBOFLAVIN TAB [Concomitant]
     Indication: HEADACHE
     Dosage: 4 DF, UNK
     Dates: start: 20101111
  11. MIDRIN [Concomitant]
     Dosage: 3 DF, UNK
     Route: 048
     Dates: start: 20101027
  12. MAGNESIUM OXIDE [Concomitant]
     Indication: MIGRAINE
     Dosage: 1 DF, BID
     Route: 048
     Dates: start: 20101111
  13. IMMUNOGLOBULINS [Concomitant]
  14. LORAZEPAM [Concomitant]
     Indication: MIGRAINE
     Dosage: 1 DF, UNK
     Route: 048

REACTIONS (2)
  - CONVULSION [None]
  - ANTICONVULSANT DRUG LEVEL DECREASED [None]
